FAERS Safety Report 5942419-3 (Version None)
Quarter: 2008Q4

REPORT INFORMATION
  Report Type: 
  Country: None (occurrence: None)
  Receive Date: 20081105
  Receipt Date: 20081027
  Transmission Date: 20090506
  Serious: Yes (Hospitalization, Other)
  Sender: FDA-Public Use
  Company Number: BR-PFIZER INC-2008092533

PATIENT
  Age: 26 Year
  Sex: Female

DRUGS (1)
  1. LITHIUM [Suspect]
     Indication: BIPOLAR DISORDER
     Dosage: DAILY DOSE:1500MG

REACTIONS (3)
  - CEREBELLAR ATROPHY [None]
  - DRUG TOXICITY [None]
  - NERVOUS SYSTEM DISORDER [None]
